FAERS Safety Report 7692074-X (Version None)
Quarter: 2011Q3

REPORT INFORMATION
  Report Type: 
  Country: None (occurrence: None)
  Receive Date: 20110818
  Receipt Date: 20110808
  Transmission Date: 20111222
  Serious: Yes (Other)
  Sender: FDA-Public Use
  Company Number: PHHY2011HR71978

PATIENT
  Age: 67 Year
  Sex: Female

DRUGS (7)
  1. HYDROCHLOROTHIAZIDE [Concomitant]
  2. CITALOPRAM HYDROBROMIDE [Suspect]
     Dosage: 20 MG, UNK
  3. POTASSIUM [Concomitant]
  4. LOSARTAN [Concomitant]
  5. FUROSEMIDE [Concomitant]
  6. PROPAFENONE HCL [Concomitant]
  7. BISOPROLOL FUMARATE [Concomitant]

REACTIONS (7)
  - DYSPHONIA [None]
  - BRADYKINESIA [None]
  - TREMOR [None]
  - SLOW RESPONSE TO STIMULI [None]
  - MASKED FACIES [None]
  - PARKINSONISM [None]
  - GAIT DISTURBANCE [None]
